FAERS Safety Report 6895644-1 (Version None)
Quarter: 2010Q3

REPORT INFORMATION
  Report Type: 
  Country: None (occurrence: None)
  Receive Date: 20100802
  Receipt Date: 20100723
  Transmission Date: 20110219
  Serious: Yes (Other)
  Sender: FDA-Public Use
  Company Number: US-SANOFI-AVENTIS-2010SA043605

PATIENT
  Age: 69 Year
  Sex: Female

DRUGS (1)
  1. LANTUS [Suspect]
     Indication: TYPE 2 DIABETES MELLITUS
     Dosage: 30-35 UNITS DAILY IN THE MORNING
     Route: 058
     Dates: start: 20010101

REACTIONS (5)
  - BLOOD GLUCOSE INCREASED [None]
  - CATARACT [None]
  - EYE HAEMORRHAGE [None]
  - INTRAOCULAR PRESSURE INCREASED [None]
  - RETINAL DISORDER [None]
